FAERS Safety Report 6208166-8 (Version None)
Quarter: 2009Q2

REPORT INFORMATION
  Report Type: 
  Country: None (occurrence: None)
  Receive Date: 20090529
  Receipt Date: 20090521
  Transmission Date: 20091009
  Serious: Yes (Other)
  Sender: FDA-Public Use
  Company Number: US-ROCHE-634686

PATIENT
  Age: 51 Year
  Sex: Male

DRUGS (1)
  1. KLONOPIN [Suspect]
     Dosage: DOSE: 2 MG AT BEDTIME, ROUTE: UNDER TONGUE, FORM: WAFER
     Route: 060

REACTIONS (2)
  - PROSTHESIS IMPLANTATION [None]
  - TACHYPHRENIA [None]
